FAERS Safety Report 15978544 (Version 1)
Quarter: 2019Q1

REPORT INFORMATION
  Report Type: Spontaneous
  Country: CA (occurrence: CA)
  Receive Date: 20190219
  Receipt Date: 20190219
  Transmission Date: 20190418
  Serious: Yes (Hospitalization)
  Sender: FDA-Public Use
  Company Number: CA-STRIDES ARCOLAB LIMITED-2019SP001555

PATIENT
  Age: 44 Year
  Sex: Male

DRUGS (4)
  1. CLARITIN [Concomitant]
     Active Substance: LORATADINE
     Indication: PRURITUS
     Dosage: UNK
     Route: 065
  2. CETIRIZINE [Suspect]
     Active Substance: CETIRIZINE HYDROCHLORIDE
     Indication: PRURITUS
     Dosage: UNK
     Route: 065
  3. KENACOMB /00131301/ [Suspect]
     Active Substance: GRAMICIDIN\NEOMYCIN SULFATE\NYSTATIN\TRIAMCINOLONE ACETONIDE
     Indication: RASH
     Dosage: UNK
     Route: 065
  4. ATARAX                             /00058403/ [Suspect]
     Active Substance: HYDROXYZINE PAMOATE
     Indication: DERMATITIS CONTACT
     Dosage: UNK
     Route: 065

REACTIONS (3)
  - Reaction to excipient [None]
  - Therapeutic product cross-reactivity [Unknown]
  - Dermatitis contact [Unknown]
